FAERS Safety Report 23467825 (Version 1)
Quarter: 2024Q1

REPORT INFORMATION
  Report Type: Spontaneous
  Country: FR (occurrence: FR)
  Receive Date: 20240201
  Receipt Date: 20240201
  Transmission Date: 20240410
  Serious: Yes (Hospitalization, Disabling)
  Sender: FDA-Public Use
  Company Number: None

PATIENT
  Age: 46 Year
  Sex: Female

DRUGS (2)
  1. ROPIVACAINE HYDROCHLORIDE [Suspect]
     Active Substance: ROPIVACAINE HYDROCHLORIDE
     Indication: Spinal anaesthesia
     Route: 008
     Dates: start: 20240110, end: 20240111
  2. EPINEPHRINE\LIDOCAINE HYDROCHLORIDE [Suspect]
     Active Substance: EPINEPHRINE\LIDOCAINE HYDROCHLORIDE
     Indication: Spinal anaesthesia
     Dosage: 10ML?ROA: EPIDURAL
     Route: 008
     Dates: start: 20240110, end: 20240110

REACTIONS (1)
  - Arachnoiditis [Not Recovered/Not Resolved]

NARRATIVE: CASE EVENT DATE: 20240111
